FAERS Safety Report 18600576 (Version 1)
Quarter: 2020Q4

REPORT INFORMATION
  Report Type: Spontaneous
  Country: US (occurrence: US)
  Receive Date: 20201210
  Receipt Date: 20201210
  Transmission Date: 20210114
  Serious: Yes (Hospitalization)
  Sender: FDA-Public Use
  Company Number: None

PATIENT
  Age: 73 Year
  Sex: Female
  Weight: 67.68 kg

DRUGS (2)
  1. NANOLIPOSOMAL IRINOTECAN [Suspect]
     Active Substance: IRINOTECAN
     Indication: COLON CANCER METASTATIC
     Dates: start: 20201103, end: 20201103
  2. NANOLIPOSOMAL IRINOTECAN [Suspect]
     Active Substance: IRINOTECAN
     Indication: METASTASES TO PERITONEUM
     Dates: start: 20201103, end: 20201103

REACTIONS (6)
  - Vomiting [None]
  - Failure to thrive [None]
  - Hypophagia [None]
  - Nausea [None]
  - Abdominal pain [None]
  - Intra-abdominal fluid collection [None]

NARRATIVE: CASE EVENT DATE: 20201208
